FAERS Safety Report 12953684 (Version 4)
Quarter: 2018Q3

REPORT INFORMATION
  Report Type: Report from Study
  Country: MW (occurrence: MW)
  Receive Date: 20161117
  Receipt Date: 20180820
  Transmission Date: 20181010
  Serious: Yes (Hospitalization)
  Sender: FDA-Public Use
  Company Number: MW-GILEAD-2016-0242786

PATIENT
  Age: 35 Year
  Sex: Male
  Weight: 60 kg

DRUGS (7)
  1. VINCRISTINE [Suspect]
     Active Substance: VINCRISTINE
     Indication: PRODUCT USED FOR UNKNOWN INDICATION
     Dosage: 2 MG, Q3WK
     Route: 065
     Dates: start: 20150615, end: 20151026
  2. TRAMADOL HYDROCHLORIDE. [Concomitant]
     Active Substance: TRAMADOL HYDROCHLORIDE
  3. BLEOMYCIN SULFATE [Suspect]
     Active Substance: BLEOMYCIN SULFATE
     Indication: PRODUCT USED FOR UNKNOWN INDICATION
     Dosage: 24.9 UNITS, Q3WK
     Route: 065
     Dates: start: 20150615, end: 20151026
  4. EFAVIRENZ/EMTRICITABINE/TENOFOVIR DISOPROXIL FUMARATE [Suspect]
     Active Substance: EFAVIRENZ\EMTRICITABINE\TENOFOVIR DISOPROXIL FUMARATE
     Indication: KAPOSI^S SARCOMA AIDS RELATED
     Dosage: 600 MG+200 MG+300 MG
     Route: 048
     Dates: start: 20150714
  5. PACLITAXEL. [Suspect]
     Active Substance: PACLITAXEL
     Indication: PRODUCT USED FOR UNKNOWN INDICATION
     Dosage: 152 MG, Q3WK
     Route: 042
     Dates: start: 20160615, end: 20160926
  6. PACLITAXEL. [Suspect]
     Active Substance: PACLITAXEL
     Dosage: 160 MG, Q3WK
     Route: 042
  7. FERROUS SULFATE. [Concomitant]
     Active Substance: FERROUS SULFATE

REACTIONS (1)
  - Anaemia [Recovered/Resolved]

NARRATIVE: CASE EVENT DATE: 20161102
